FAERS Safety Report 15979904 (Version 3)
Quarter: 2023Q1

REPORT INFORMATION
  Report Type: Other
  Country: PL (occurrence: PL)
  Receive Date: 20190219
  Receipt Date: 20230228
  Transmission Date: 20230418
  Serious: Yes (Death, Hospitalization, Other)
  Sender: FDA-Public Use
  Company Number: PL-MACLEODS PHARMACEUTICALS US LTD-MAC2019020128

PATIENT

DRUGS (58)
  1. PANTOPRAZOLE [Suspect]
     Active Substance: PANTOPRAZOLE
     Indication: Product used for unknown indication
     Dosage: UNK
     Route: 065
  2. PANTOPRAZOLE [Suspect]
     Active Substance: PANTOPRAZOLE
     Dosage: UNK
     Route: 065
  3. VENLAFAXINE [Suspect]
     Active Substance: VENLAFAXINE HYDROCHLORIDE
     Indication: Anxiety disorder
     Dosage: UNK
     Route: 065
  4. NYSTATIN [Suspect]
     Active Substance: NYSTATIN
     Indication: Acinetobacter infection
     Dosage: UNK
     Route: 065
  5. CIPROFLOXACIN [Suspect]
     Active Substance: CIPROFLOXACIN
     Indication: Product used for unknown indication
     Dosage: UNK
     Route: 065
  6. AMOXICILLIN\CLAVULANATE POTASSIUM [Suspect]
     Active Substance: AMOXICILLIN\CLAVULANATE POTASSIUM
     Indication: Moraxella infection
     Dosage: UNK
     Route: 065
  7. AMOXICILLIN\CLAVULANATE POTASSIUM [Suspect]
     Active Substance: AMOXICILLIN\CLAVULANATE POTASSIUM
     Indication: Escherichia urinary tract infection
  8. AMOXICILLIN\CLAVULANATE POTASSIUM [Suspect]
     Active Substance: AMOXICILLIN\CLAVULANATE POTASSIUM
     Indication: Bronchitis
  9. AMOXICILLIN\CLAVULANATE POTASSIUM [Suspect]
     Active Substance: AMOXICILLIN\CLAVULANATE POTASSIUM
     Indication: Corynebacterium infection
  10. AMOXICILLIN\CLAVULANATE POTASSIUM [Suspect]
     Active Substance: AMOXICILLIN\CLAVULANATE POTASSIUM
     Indication: Urinary tract infection
  11. ITRACONAZOLE [Suspect]
     Active Substance: ITRACONAZOLE
     Indication: Bacterial infection
     Dosage: UNK
     Route: 065
  12. BUDESONIDE [Suspect]
     Active Substance: BUDESONIDE
     Indication: Polyp
     Dosage: UNK
     Route: 065
  13. BUDESONIDE [Suspect]
     Active Substance: BUDESONIDE
     Indication: Otitis media
  14. AMIKACIN [Suspect]
     Active Substance: AMIKACIN
     Indication: Bacterial infection
     Dosage: UNK
     Route: 065
  15. METHYLPREDNISOLONE [Suspect]
     Active Substance: METHYLPREDNISOLONE
     Indication: Lung transplant
     Dosage: UNK
     Route: 065
  16. METHYLPREDNISOLONE [Suspect]
     Active Substance: METHYLPREDNISOLONE
     Indication: Lung transplant rejection
     Dosage: UNK
     Route: 065
  17. METHYLPREDNISOLONE [Suspect]
     Active Substance: METHYLPREDNISOLONE
     Dosage: 0.5 MILLIGRAM, QD
     Route: 065
  18. CLINDAMYCIN [Suspect]
     Active Substance: CLINDAMYCIN
     Indication: Polyp
     Dosage: UNK
     Route: 065
  19. CLINDAMYCIN [Suspect]
     Active Substance: CLINDAMYCIN
     Indication: Otitis media
  20. CEFUROXIME [Suspect]
     Active Substance: CEFUROXIME
     Indication: Bacterial infection
     Dosage: UNK
     Route: 065
  21. METRONIDAZOLE [Suspect]
     Active Substance: METRONIDAZOLE
     Indication: Infection
     Dosage: UNK
     Route: 065
  22. AMPHOTERICIN B [Suspect]
     Active Substance: AMPHOTERICIN B
     Indication: Bacterial infection
     Dosage: UNK
     Route: 065
  23. TAZOBACTAM [Suspect]
     Active Substance: TAZOBACTAM
     Indication: Infection
     Dosage: UNK
     Route: 065
  24. IMIPENEM [Suspect]
     Active Substance: IMIPENEM
     Indication: Bacterial infection
     Dosage: UNK
     Route: 065
  25. IMIPENEM [Suspect]
     Active Substance: IMIPENEM
     Indication: Otitis media
  26. IMIPENEM [Suspect]
     Active Substance: IMIPENEM
     Indication: Polyp
  27. GANCICLOVIR [Suspect]
     Active Substance: GANCICLOVIR
     Indication: Cytomegalovirus infection
     Dosage: UNK
     Route: 065
  28. INSULIN NOS [Suspect]
     Active Substance: INSULIN NOS
     Indication: Diabetes mellitus
     Dosage: UNK
     Route: 065
  29. OPIPRAMOL [Suspect]
     Active Substance: OPIPRAMOL
     Indication: Pulmonary embolism
     Dosage: UNK
     Route: 065
  30. OPIPRAMOL [Suspect]
     Active Substance: OPIPRAMOL
     Indication: Anxiety disorder
  31. CEFTAZIDIME [Suspect]
     Active Substance: CEFTAZIDIME
     Indication: Otitis media
     Dosage: UNK
     Route: 065
  32. CEFTAZIDIME [Suspect]
     Active Substance: CEFTAZIDIME
     Indication: Bacterial infection
     Dosage: UNK
     Route: 065
  33. CEFTAZIDIME [Suspect]
     Active Substance: CEFTAZIDIME
     Indication: Escherichia sepsis
  34. AMPICILLIN SODIUM\SULBACTAM SODIUM [Suspect]
     Active Substance: AMPICILLIN SODIUM\SULBACTAM SODIUM
     Indication: Bacterial infection
     Dosage: UNK
     Route: 065
  35. GLIMEPIRIDE [Suspect]
     Active Substance: GLIMEPIRIDE
     Indication: Diabetes mellitus
     Dosage: UNK
     Route: 065
  36. PREDNISONE [Suspect]
     Active Substance: PREDNISONE
     Indication: Lung transplant
     Dosage: 10 MILLIGRAM, QD
     Route: 065
  37. PREDNISONE [Suspect]
     Active Substance: PREDNISONE
     Indication: Immunosuppression
     Dosage: UNK
     Route: 065
  38. PREDNISONE [Suspect]
     Active Substance: PREDNISONE
     Indication: Immunosuppressant drug therapy
  39. MYCOPHENOLATE MOFETIL [Suspect]
     Active Substance: MYCOPHENOLATE MOFETIL
     Indication: Lung transplant
     Dosage: 1000 MILLIGRAM, BID
     Route: 065
  40. MYCOPHENOLATE MOFETIL [Suspect]
     Active Substance: MYCOPHENOLATE MOFETIL
     Indication: Immunosuppression
     Dosage: UNK
     Route: 065
  41. MYCOPHENOLATE MOFETIL [Suspect]
     Active Substance: MYCOPHENOLATE MOFETIL
     Indication: Immunosuppressant drug therapy
  42. CYCLOSPORINE [Suspect]
     Active Substance: CYCLOSPORINE
     Indication: Lung transplant
     Dosage: 50 MILLIGRAM, BID, EVERY 12 HOURS
     Route: 065
  43. CYCLOSPORINE [Suspect]
     Active Substance: CYCLOSPORINE
     Indication: Immunosuppressant drug therapy
     Dosage: UNK
     Route: 065
  44. CYCLOSPORINE [Suspect]
     Active Substance: CYCLOSPORINE
     Indication: Immunosuppression
  45. COLISTIN [Suspect]
     Active Substance: COLISTIN
     Indication: Product used for unknown indication
     Dosage: UNK
     Route: 065
  46. VALGANCICLOVIR [Suspect]
     Active Substance: VALGANCICLOVIR
     Indication: Cytomegalovirus infection
     Dosage: UNK
     Route: 065
  47. MIANSERIN [Suspect]
     Active Substance: MIANSERIN
     Indication: Depression
     Dosage: 0.5 MILLIGRAM, QD
     Route: 065
  48. MIANSERIN [Suspect]
     Active Substance: MIANSERIN
     Indication: Immunosuppression
     Dosage: UNK
     Route: 065
  49. MIANSERIN [Suspect]
     Active Substance: MIANSERIN
     Indication: Lung transplant rejection
  50. MIANSERIN [Suspect]
     Active Substance: MIANSERIN
     Indication: Lung transplant
  51. TACROLIMUS [Suspect]
     Active Substance: TACROLIMUS
     Indication: Lung transplant
     Dosage: 0.5 MILLIGRAM, QD
     Route: 065
  52. TACROLIMUS [Suspect]
     Active Substance: TACROLIMUS
     Indication: Immunosuppression
  53. TACROLIMUS [Suspect]
     Active Substance: TACROLIMUS
     Indication: Immunosuppressant drug therapy
  54. RITUXIMAB [Concomitant]
     Active Substance: RITUXIMAB
     Indication: Lymphocyte count decreased
     Dosage: UNK
     Route: 065
  55. RITUXIMAB [Concomitant]
     Active Substance: RITUXIMAB
     Indication: Lung transplant
  56. ALBUMIN HUMAN [Concomitant]
     Active Substance: ALBUMIN HUMAN
     Indication: Product used for unknown indication
     Dosage: 100 MILLIGRAM, 100 ML, UNK
     Route: 065
  57. IMMUNGLOBULIN [Concomitant]
     Indication: Lung transplant
     Dosage: UNK, EVERY THREE WEEKS
     Route: 065
  58. IMMUNGLOBULIN [Concomitant]
     Dosage: UNK, EVERY THREE WEEKS

REACTIONS (27)
  - Escherichia sepsis [Fatal]
  - Sepsis [Fatal]
  - Bacterial infection [Fatal]
  - Diabetes mellitus [Fatal]
  - Leukopenia [Fatal]
  - Transplant rejection [Fatal]
  - Lung transplant rejection [Unknown]
  - Renal failure [Not Recovered/Not Resolved]
  - Proteus infection [Unknown]
  - Candida infection [Unknown]
  - Electrolyte imbalance [Unknown]
  - Bronchitis [Unknown]
  - Pulmonary embolism [Unknown]
  - Pseudomonas infection [Recovered/Resolved]
  - Cytomegalovirus infection [Not Recovered/Not Resolved]
  - Escherichia urinary tract infection [Unknown]
  - Otitis media [Unknown]
  - Acinetobacter infection [Unknown]
  - Hypoproteinaemia [Unknown]
  - Moraxella infection [Unknown]
  - Klebsiella infection [Unknown]
  - Aspergillus infection [Unknown]
  - Hypogammaglobulinaemia [Unknown]
  - Depressive symptom [Unknown]
  - Anxiety disorder [Unknown]
  - Diabetic ketoacidosis [Unknown]
  - Polyp [Unknown]
